FAERS Safety Report 24712542 (Version 1)
Quarter: 2024Q4

REPORT INFORMATION
  Report Type: Spontaneous
  Country: NL (occurrence: NL)
  Receive Date: 20241209
  Receipt Date: 20241209
  Transmission Date: 20250114
  Serious: Yes (Hospitalization)
  Sender: MYLAN
  Company Number: None

PATIENT
  Age: 75 Year
  Sex: Male

DRUGS (6)
  1. MINOCYCLINE [Suspect]
     Active Substance: MINOCYCLINE HYDROCHLORIDE
     Indication: Rash pustular
     Dosage: 100 MILLIGRAM, QD (1DD1 )
     Route: 048
     Dates: start: 20240711, end: 20240731
  2. ATORVASTATIN [Suspect]
     Active Substance: ATORVASTATIN
     Indication: Hypercholesterolaemia
     Dosage: 80 MILLIGRAM, QD (1DD1)
     Route: 048
     Dates: start: 20240315, end: 20240731
  3. OMEPRAZOLE [Concomitant]
     Active Substance: OMEPRAZOLE
     Dosage: 20 MILLIGRAM (GASTRO-RESISTANT CAPSULE, 20 MG (MILLIGRAMS) )
     Route: 048
  4. TICAGRELOR [Concomitant]
     Active Substance: TICAGRELOR
     Dosage: 90 MILLIGRAM (MELTING TABLET, 90 MG (MILLIGRAMS))
     Route: 048
  5. ASPIRIN [Concomitant]
     Active Substance: ASPIRIN
     Dosage: 80 MILLIGRAM (TABLET, 80 MG (MILLIGRAM)  )
     Route: 048
  6. FOSINOPRIL [Concomitant]
     Active Substance: FOSINOPRIL
     Dosage: 20 MILLIGRAM (TABLET, 20 MG (MILLIGRAM)  )
     Route: 048

REACTIONS (3)
  - Arrhythmia [Recovered/Resolved]
  - Kidney infection [Recovered/Resolved]
  - Hepatitis [Recovered/Resolved]
